FAERS Safety Report 11829253 (Version 1)
Quarter: 2015Q4

REPORT INFORMATION
  Report Type: Spontaneous
  Country: US (occurrence: US)
  Receive Date: 20151211
  Receipt Date: 20151211
  Transmission Date: 20160305
  Serious: No
  Sender: FDA-Public Use
  Company Number: US-BAUSCH-BL-2015-011922

PATIENT
  Sex: Male

DRUGS (8)
  1. XENAZINE [Suspect]
     Active Substance: TETRABENAZINE
     Dosage: AT WEEK 4 AND 5, ONE TABLET ORALLY AT NIGHT
     Route: 048
  2. XENAZINE [Suspect]
     Active Substance: TETRABENAZINE
     Dosage: 12.5MG TABLET TAKEN ORALLY IN THE MORNING AND EVENING
     Route: 048
  3. SERTRALINE [Concomitant]
     Active Substance: SERTRALINE HYDROCHLORIDE
     Indication: ANXIETY
     Dosage: ONE TABLET ORALLY AT BEDTIME
     Route: 048
  4. RISPERIDONE. [Concomitant]
     Active Substance: RISPERIDONE
  5. XENAZINE [Suspect]
     Active Substance: TETRABENAZINE
     Dosage: ? TABLET TAKEN  IN THE NOONTIME
     Route: 048
  6. RISPERIDONE. [Concomitant]
     Active Substance: RISPERIDONE
     Indication: PRODUCT USED FOR UNKNOWN INDICATION
  7. XENAZINE [Suspect]
     Active Substance: TETRABENAZINE
     Dosage: AT WEEK 4 AND 5, 1/2 TABLET ORALLY IN THE MORNING
     Route: 048
  8. XENAZINE [Suspect]
     Active Substance: TETRABENAZINE
     Indication: HUNTINGTON^S DISEASE
     Route: 048
     Dates: start: 20150311, end: 20150421

REACTIONS (5)
  - Anxiety [Recovering/Resolving]
  - Gait disturbance [Recovering/Resolving]
  - Photophobia [Recovering/Resolving]
  - Depression [Recovering/Resolving]
  - Headache [Recovered/Resolved]
